FAERS Safety Report 10010001 (Version 2)
Quarter: 2014Q1

REPORT INFORMATION
  Report Type: Spontaneous
  Country: US (occurrence: US)
  Receive Date: 20140312
  Receipt Date: 20140312
  Transmission Date: 20141002
  Serious: Yes (Other)
  Sender: FDA-Public Use
  Company Number: US-INCYTE CORPORATION-2013IN000513

PATIENT
  Age: 76 Year
  Sex: Male

DRUGS (6)
  1. JAKAFI [Suspect]
     Indication: MYELOFIBROSIS
     Dosage: 15 MG, BID
     Route: 048
     Dates: start: 20130214
  2. LIPITOR [Concomitant]
  3. FLOMAX [Concomitant]
  4. ALTACE [Concomitant]
  5. ARANESP [Concomitant]
  6. TYLENOL [Concomitant]

REACTIONS (4)
  - Anaemia [Unknown]
  - Back pain [Unknown]
  - Arthralgia [Unknown]
  - Increased appetite [Unknown]
